FAERS Safety Report 6357307-0 (Version None)
Quarter: 2009Q3

REPORT INFORMATION
  Report Type: 
  Country: None (occurrence: None)
  Receive Date: 20090916
  Receipt Date: 20090910
  Transmission Date: 20100115
  Serious: Yes (Death, Hospitalization)
  Sender: FDA-Public Use
  Company Number: PHHY2009IT17447

PATIENT
  Sex: Female

DRUGS (1)
  1. ZOMETA [Suspect]
     Indication: METASTASES TO BONE
     Dosage: 4 MG + 5 ML
     Route: 042
     Dates: start: 20070403, end: 20090403

REACTIONS (4)
  - CELLULITIS [None]
  - DENTAL CARIES [None]
  - OSTEONECROSIS [None]
  - TOOTH ABSCESS [None]
